FAERS Safety Report 12990628 (Version 2)
Quarter: 2017Q2

REPORT INFORMATION
  Report Type: Spontaneous
  Country: TW (occurrence: TW)
  Receive Date: 20161201
  Receipt Date: 20170508
  Transmission Date: 20170830
  Serious: Yes (Life-Threatening, Hospitalization, Other)
  Sender: FDA-Public Use
  Company Number: TW-MYLANLABS-2016M1051573

PATIENT

DRUGS (3)
  1. OXALIPLATIN. [Suspect]
     Active Substance: OXALIPLATIN
     Indication: RECTAL CANCER METASTATIC
     Dosage: 160MG
     Route: 065
  2. FLUOROURACIL. [Suspect]
     Active Substance: FLUOROURACIL
     Indication: RECTAL CANCER METASTATIC
     Dosage: 2800MG
     Route: 065
  3. FOLINIC ACID [Suspect]
     Active Substance: LEUCOVORIN
     Indication: RECTAL CANCER METASTATIC
     Dosage: 200MG
     Route: 065

REACTIONS (5)
  - Ventricular tachycardia [Unknown]
  - Tumour lysis syndrome [Recovered/Resolved]
  - Cardiogenic shock [Unknown]
  - Acute kidney injury [Unknown]
  - Gangrene [Not Recovered/Not Resolved]
